FAERS Safety Report 11908997 (Version 1)
Quarter: 2016Q1

REPORT INFORMATION
  Report Type: Spontaneous
  Country: US (occurrence: US)
  Receive Date: 20160111
  Receipt Date: 20160111
  Transmission Date: 20160526
  Serious: No
  Sender: FDA-Public Use
  Company Number: US-BIOGEN-2016BI00168920

PATIENT
  Sex: Female

DRUGS (1)
  1. AVONEX [Suspect]
     Active Substance: INTERFERON BETA-1A
     Indication: MULTIPLE SCLEROSIS
     Route: 030
     Dates: start: 20020809

REACTIONS (4)
  - Musculoskeletal disorder [Not Recovered/Not Resolved]
  - Multiple sclerosis [Not Recovered/Not Resolved]
  - Pain [Not Recovered/Not Resolved]
  - Device malfunction [Not Recovered/Not Resolved]
